FAERS Safety Report 10735928 (Version 1)
Quarter: 2015Q1

REPORT INFORMATION
  Report Type: Spontaneous
  Country: DK (occurrence: None)
  Receive Date: 20150121
  Receipt Date: 20150121
  Transmission Date: 20150721
  Serious: Yes (Hospitalization)
  Sender: FDA-Public Use
  Company Number: FK201500107

PATIENT
  Age: 66 Year
  Sex: Female
  Weight: 69.8 kg

DRUGS (4)
  1. PANTOPRAZOLE (PANTOPRAZOLE) [Concomitant]
     Active Substance: PANTOPRAZOLE SODIUM
  2. EMPERAL (METOCLOPRAMIDHYDROCHLORID) [Concomitant]
  3. CARBOPLATIN INJECTION 10MG/ML (CARBOPLATIN USP) (CARBOPLATIN USP) [Suspect]
     Active Substance: CARBOPLATIN
     Indication: LUNG NEOPLASM MALIGNANT
     Route: 042
     Dates: start: 20130704, end: 20130704
  4. NAVELBINE [Suspect]
     Active Substance: VINORELBINE TARTRATE
     Indication: LUNG NEOPLASM MALIGNANT
     Route: 048
     Dates: start: 20130704, end: 20130711

REACTIONS (3)
  - Diarrhoea [None]
  - Pyrexia [None]
  - Back pain [None]

NARRATIVE: CASE EVENT DATE: 20130720
